FAERS Safety Report 21696992 (Version 1)
Quarter: 2022Q4

REPORT INFORMATION
  Report Type: Spontaneous
  Country: US (occurrence: US)
  Receive Date: 20221208
  Receipt Date: 20221208
  Transmission Date: 20230113
  Serious: No
  Sender: FDA-Public Use
  Company Number: US-JNJFOC-20221164184

PATIENT

DRUGS (2)
  1. PONVORY [Suspect]
     Active Substance: PONESIMOD
     Indication: Product used for unknown indication
     Route: 065
  2. MAVENCLAD [Suspect]
     Active Substance: CLADRIBINE
     Indication: Product used for unknown indication
     Route: 065

REACTIONS (6)
  - Dyspnoea [Unknown]
  - Burning sensation [Unknown]
  - Chest pain [Unknown]
  - Dizziness [Unknown]
  - Visual impairment [Unknown]
  - Hypervigilance [Unknown]
